FAERS Safety Report 21102590 (Version 3)
Quarter: 2024Q3

REPORT INFORMATION
  Report Type: Spontaneous
  Country: US (occurrence: US)
  Receive Date: 20220719
  Receipt Date: 20240715
  Transmission Date: 20241016
  Serious: Yes (Death)
  Sender: PAREXEL
  Company Number: US-AVEO ONCOLOGY-2022-AVEO-US000282

PATIENT

DRUGS (25)
  1. FOTIVDA [Suspect]
     Active Substance: TIVOZANIB HYDROCHLORIDE
     Indication: Renal cell carcinoma
     Dosage: 1.34 MG, DAILY FOR 21 DAYS WITH 7 DAYS OFF (28-DAY CYCLE)
     Route: 048
     Dates: start: 20220412, end: 20220628
  2. ATIVAN [Concomitant]
     Active Substance: LORAZEPAM
  3. ATROVENT [Concomitant]
     Active Substance: IPRATROPIUM BROMIDE
  4. BOOST BREEZE [Concomitant]
  5. CATAPRES [Concomitant]
     Active Substance: CLONIDINE HYDROCHLORIDE
  6. CEFEPIME [Concomitant]
     Active Substance: CEFEPIME HYDROCHLORIDE
  7. DUONEB [Concomitant]
     Active Substance: ALBUTEROL SULFATE\IPRATROPIUM BROMIDE
  8. FLOMAX [Concomitant]
     Active Substance: TAMSULOSIN HYDROCHLORIDE
  9. GABAPENTIN [Concomitant]
     Active Substance: GABAPENTIN
  10. HYDROMET [Concomitant]
     Active Substance: HOMATROPINE METHYLBROMIDE\HYDROCODONE BITARTRATE
  11. KENALOG [Concomitant]
     Active Substance: TRIAMCINOLONE ACETONIDE
  12. LORATADINE [Concomitant]
     Active Substance: LORATADINE
  13. MIRALAX [Concomitant]
     Active Substance: POLYETHYLENE GLYCOL 3350
  14. NARCAN [Concomitant]
     Active Substance: NALOXONE HYDROCHLORIDE
  15. NORCO [Concomitant]
     Active Substance: ACETAMINOPHEN\HYDROCODONE BITARTRATE
  16. NORVASC [Concomitant]
     Active Substance: AMLODIPINE BESYLATE
  17. OMNIPAQUE [Concomitant]
     Active Substance: IOHEXOL
  18. ONDANSETRON [Concomitant]
     Active Substance: ONDANSETRON
  19. PEPCID [Concomitant]
     Active Substance: FAMOTIDINE
  20. PREDNISONE [Concomitant]
     Active Substance: PREDNISONE
  21. PROAIR HFA [Concomitant]
     Active Substance: ALBUTEROL SULFATE
  22. PROCHLORPERAZINE [Concomitant]
     Active Substance: PROCHLORPERAZINE
  23. SODIUM CHLORIDE [Concomitant]
     Active Substance: SODIUM CHLORIDE
  24. VITAMINS [Concomitant]
     Active Substance: VITAMINS
  25. ZYPREXA [Concomitant]
     Active Substance: OLANZAPINE

REACTIONS (1)
  - Acute respiratory failure [Fatal]

NARRATIVE: CASE EVENT DATE: 20220701
